FAERS Safety Report 10247468 (Version 2)
Quarter: 2014Q2

REPORT INFORMATION
  Report Type: Report from Study
  Country: CZ (occurrence: CZ)
  Receive Date: 20140619
  Receipt Date: 20140619
  Transmission Date: 20141212
  Serious: Yes (Hospitalization)
  Sender: FDA-Public Use
  Company Number: CZ-ONYX-2013-2012

PATIENT
  Age: 75 Year
  Sex: Male

DRUGS (17)
  1. CARFILZOMIB [Suspect]
     Indication: PLASMA CELL MYELOMA
     Route: 042
     Dates: start: 20131009, end: 20131010
  2. CARFILZOMIB [Suspect]
     Route: 042
     Dates: start: 20131016, end: 20131024
  3. CARFILZOMIB [Suspect]
     Route: 042
     Dates: start: 20131106, end: 20131211
  4. CARFILZOMIB [Suspect]
     Route: 042
     Dates: start: 20140102
  5. DEXAMETHASONE [Suspect]
     Indication: PLASMA CELL MYELOMA
     Route: 048
     Dates: start: 20131009, end: 20131211
  6. DEXAMETHASONE [Suspect]
     Route: 048
     Dates: start: 20140102
  7. AMPRILAN [Concomitant]
     Indication: HYPERTENSION
     Route: 048
     Dates: start: 2008, end: 20131230
  8. LORISTA [Concomitant]
     Indication: HYPERTENSION
     Route: 048
     Dates: start: 2008
  9. CALCIUM [Concomitant]
     Indication: CALCIUM DEFICIENCY
     Route: 048
     Dates: start: 20110816
  10. PURINOL [Concomitant]
     Indication: HYPERURICAEMIA
     Route: 048
     Dates: start: 20110816
  11. PURINOL [Concomitant]
     Indication: PROPHYLAXIS
  12. VITAMIN D [Concomitant]
     Indication: VITAMIN D DEFICIENCY
     Route: 048
     Dates: start: 20110816
  13. RILMENIDIN [Concomitant]
     Indication: HYPERTENSION
     Route: 048
     Dates: start: 2012
  14. ZOMETA-FAYTON [Concomitant]
     Indication: MINERAL METABOLISM DISORDER
     Route: 042
     Dates: start: 20130304
  15. HELICID [Concomitant]
     Indication: GASTRIC DISORDER
     Route: 048
     Dates: start: 20131009
  16. VALTREX [Concomitant]
     Indication: ANTIVIRAL PROPHYLAXIS
     Route: 048
     Dates: start: 20131009
  17. TUTUS [Concomitant]

REACTIONS (1)
  - Pulmonary embolism [Recovered/Resolved]
